FAERS Safety Report 11580083 (Version 1)
Quarter: 2015Q3

REPORT INFORMATION
  Report Type: Spontaneous
  Country: FR (occurrence: FR)
  Receive Date: 20150930
  Receipt Date: 20150930
  Transmission Date: 20151125
  Serious: Yes (Other)
  Sender: FDA-Public Use
  Company Number: FR-CONCORDIA PHARMACEUTICALS INC.-CO-UX-FR-2015-033

PATIENT
  Age: 62 Year
  Sex: Male

DRUGS (1)
  1. XATRAL [Suspect]
     Active Substance: ALFUZOSIN
     Route: 048

REACTIONS (3)
  - Heart rate irregular [Unknown]
  - Malaise [Unknown]
  - Dizziness [Unknown]
